FAERS Safety Report 23091725 (Version 1)
Quarter: 2023Q4

REPORT INFORMATION
  Report Type: Spontaneous
  Country: DE (occurrence: DE)
  Receive Date: 20231020
  Receipt Date: 20231020
  Transmission Date: 20240110
  Serious: Yes (Death, Other)
  Sender: FDA-Public Use
  Company Number: None

PATIENT
  Age: 63 Year
  Sex: Female
  Weight: 65 kg

DRUGS (3)
  1. IMBRUVICA [Suspect]
     Active Substance: IBRUTINIB
     Indication: Primary amyloidosis
     Dosage: DAILY 420 MG IBRUTINIB
     Route: 048
     Dates: start: 20181009, end: 20230916
  2. IMBRUVICA [Suspect]
     Active Substance: IBRUTINIB
     Indication: Primary amyloidosis
  3. INTRATECT [Concomitant]
     Active Substance: HUMAN IMMUNOGLOBULIN G
     Indication: Immunodeficiency
     Dosage: MONTHLY
     Route: 042
     Dates: end: 20230911

REACTIONS (2)
  - Acute respiratory failure [Fatal]
  - Lung opacity [Fatal]

NARRATIVE: CASE EVENT DATE: 20230917
